FAERS Safety Report 11722697 (Version 2)
Quarter: 2015Q4

REPORT INFORMATION
  Report Type: Report from Study
  Country: IQ (occurrence: IQ)
  Receive Date: 20151111
  Receipt Date: 20151229
  Transmission Date: 20160304
  Serious: No
  Sender: FDA-Public Use
  Company Number: PHHY2015IQ097536

PATIENT
  Sex: Female

DRUGS (1)
  1. TASIGNA [Suspect]
     Active Substance: NILOTINIB
     Indication: EXPOSURE VIA FATHER
     Dosage: UNK
     Route: 050
     Dates: start: 2013

REACTIONS (2)
  - Exposure via father [Unknown]
  - Normal newborn [Unknown]
